FAERS Safety Report 7956915-0 (Version None)
Quarter: 2011Q4

REPORT INFORMATION
  Report Type: 
  Country: None (occurrence: None)
  Receive Date: 20111205
  Receipt Date: 20111109
  Transmission Date: 20120403
  Serious: No
  Sender: FDA-Public Use
  Company Number: US-BAYER-2011-109672

PATIENT
  Sex: Female

DRUGS (4)
  1. MIRENA [Suspect]
     Indication: MENOMETRORRHAGIA
  2. MIRENA [Suspect]
     Indication: OVARIAN CYST
  3. MIRENA [Suspect]
     Indication: CONTRACEPTION
     Dosage: 20 ?G/D, CONT
     Route: 015
     Dates: start: 20111107
  4. IBUPROFEN (ADVIL) [Concomitant]
     Dosage: 20 ?G/D, CONT
     Route: 015
     Dates: start: 20111107

REACTIONS (2)
  - ABDOMINAL PAIN LOWER [None]
  - MENORRHAGIA [None]
